FAERS Safety Report 5033043-8 (Version None)
Quarter: 2006Q2

REPORT INFORMATION
  Report Type: 
  Country: None (occurrence: None)
  Receive Date: 20060622
  Receipt Date: 20060607
  Transmission Date: 20061013
  Serious: Yes (Death)
  Sender: FDA-Public Use
  Company Number: FR-ROCHE-451215

PATIENT
  Sex: Male

DRUGS (11)
  1. COPEGUS [Suspect]
     Indication: ENCEPHALITIS
     Route: 048
     Dates: start: 20060429
  2. REBETOL [Suspect]
     Indication: ENCEPHALITIS
     Route: 048
     Dates: start: 20020202, end: 20020207
  3. REBETOL [Suspect]
     Route: 048
     Dates: start: 20020115, end: 20020115
  4. REBETOL [Suspect]
     Route: 048
     Dates: start: 20020116, end: 20020116
  5. REBETOL [Suspect]
     Route: 048
     Dates: start: 20020117, end: 20020117
  6. REBETOL [Suspect]
     Route: 048
     Dates: start: 20020118, end: 20020127
  7. VIRAZOLE [Suspect]
     Indication: ENCEPHALITIS
     Route: 042
     Dates: start: 20020128, end: 20020201
  8. RIVOTRIL [Concomitant]
     Indication: DEPRESSION
     Route: 065
  9. XANAX [Concomitant]
     Dates: start: 20011209
  10. STILNOX [Concomitant]
     Route: 048
     Dates: start: 20011209
  11. RISPERDAL [Concomitant]
     Route: 048
     Dates: start: 20020128, end: 20020204

REACTIONS (9)
  - CEREBRAL ATROPHY [None]
  - CONDITION AGGRAVATED [None]
  - DEPRESSION [None]
  - ENCEPHALITIS [None]
  - EOSINOPHILIA [None]
  - EXTRAPYRAMIDAL DISORDER [None]
  - HAEMOLYTIC ANAEMIA [None]
  - NERVOUS SYSTEM DISORDER [None]
  - RASH [None]
